FAERS Safety Report 17895520 (Version 1)
Quarter: 2020Q2

REPORT INFORMATION
  Report Type: Report from Study
  Country: US (occurrence: US)
  Receive Date: 20200615
  Receipt Date: 20200615
  Transmission Date: 20200714
  Serious: Yes (Other)
  Sender: FDA-Public Use
  Company Number: US-JNJFOC-20200310066

PATIENT
  Age: 60 Year
  Sex: Female

DRUGS (1)
  1. STELARA [Suspect]
     Active Substance: USTEKINUMAB
     Indication: CROHN^S DISEASE
     Route: 042

REACTIONS (9)
  - Nasal congestion [Unknown]
  - Inflammation [Unknown]
  - Fluid retention [Unknown]
  - Product dose omission [Unknown]
  - Fatigue [Recovering/Resolving]
  - Headache [Unknown]
  - Crohn^s disease [Unknown]
  - Chest discomfort [Unknown]
  - Pain [Unknown]

NARRATIVE: CASE EVENT DATE: 20200303
